FAERS Safety Report 4680559-X (Version None)
Quarter: 2005Q2

REPORT INFORMATION
  Report Type: 
  Country: None (occurrence: None)
  Receive Date: 20050531
  Receipt Date: 20050131
  Transmission Date: 20051028
  Serious: No
  Sender: FDA-Public Use
  Company Number: WAES 0502USA00155

PATIENT
  Age: 71 Year
  Sex: Female
  Weight: 72.5755 kg

DRUGS (1)
  1. ZETIA [Suspect]
     Indication: BLOOD CHOLESTEROL INCREASED
     Dosage: 10 MG/DAILY/PO
     Route: 048
     Dates: start: 20050115, end: 20050120

REACTIONS (2)
  - OEDEMA [None]
  - SWELLING FACE [None]
